FAERS Safety Report 19177486 (Version 1)
Quarter: 2021Q2

REPORT INFORMATION
  Report Type: Report from Study
  Country: None (occurrence: US)
  Receive Date: 20210425
  Receipt Date: 20210425
  Transmission Date: 20210717
  Serious: Yes (Other)
  Sender: FDA-Public Use
  Company Number: US-ABBVIE-21K-163-3870455-00

PATIENT
  Sex: Female

DRUGS (5)
  1. VENCLEXTA [Suspect]
     Active Substance: VENETOCLAX
     Indication: SQUAMOUS CELL CARCINOMA OF SKIN
  2. VENCLEXTA [Suspect]
     Active Substance: VENETOCLAX
     Indication: NEOPLASM MALIGNANT
     Route: 048
  3. VENCLEXTA [Suspect]
     Active Substance: VENETOCLAX
     Indication: BLOOD IMMUNOGLOBULIN G DECREASED
  4. VENCLEXTA [Suspect]
     Active Substance: VENETOCLAX
     Indication: CHRONIC LYMPHOCYTIC LEUKAEMIA
  5. VENCLEXTA [Suspect]
     Active Substance: VENETOCLAX
     Indication: IMMUNE SYSTEM DISORDER

REACTIONS (2)
  - Pneumonia [Unknown]
  - Laboratory test abnormal [Unknown]
